FAERS Safety Report 17075486 (Version 1)
Quarter: 2019Q4

REPORT INFORMATION
  Report Type: Spontaneous
  Country: US (occurrence: US)
  Receive Date: 20191125
  Receipt Date: 20191125
  Transmission Date: 20200122
  Serious: No
  Sender: FDA-Public Use
  Company Number: None

PATIENT
  Age: 64 Year
  Sex: Male
  Weight: 93.6 kg

DRUGS (1)
  1. EOVIST [Suspect]
     Active Substance: GADOXETATE DISODIUM
     Indication: X-RAY WITH CONTRAST
     Dates: start: 20191123, end: 20191123

REACTIONS (3)
  - Palpitations [None]
  - Dyspnoea [None]
  - Heart rate irregular [None]

NARRATIVE: CASE EVENT DATE: 20191123
